FAERS Safety Report 9997942 (Version 1)
Quarter: 2014Q1

REPORT INFORMATION
  Report Type: Spontaneous
  Country: US (occurrence: None)
  Receive Date: 20140224
  Receipt Date: 20140224
  Transmission Date: 20141002
  Serious: Yes (Hospitalization)
  Sender: FDA-Public Use
  Company Number: PHEH2013US001488

PATIENT
  Age: 88 Year
  Sex: Female

DRUGS (1)
  1. TOBI (TOBRAMYCIN) SOL. AEROSOL METERED DOSE INH. [Suspect]
     Indication: BRONCHIECTASIS
     Route: 055
     Dates: start: 20111114

REACTIONS (1)
  - Malaise [None]
